FAERS Safety Report 7545455-9 (Version None)
Quarter: 2011Q2

REPORT INFORMATION
  Report Type: 
  Country: None (occurrence: None)
  Receive Date: 20110614
  Receipt Date: 20110530
  Transmission Date: 20111010
  Serious: Yes (Life-Threatening)
  Sender: FDA-Public Use
  Company Number: ES-CELGENEUS-144-50794-11053808

PATIENT
  Age: 72 Year
  Sex: Female

DRUGS (2)
  1. WHOLE BLOOD [Concomitant]
     Route: 050
     Dates: start: 20090901, end: 20100501
  2. VIDAZA [Suspect]
     Dosage: 100 MILLIGRAM
     Route: 065
     Dates: start: 20090901, end: 20100901

REACTIONS (2)
  - NO THERAPEUTIC RESPONSE [None]
  - PANCYTOPENIA [None]
